FAERS Safety Report 5750292-1 (Version None)
Quarter: 2008Q2

REPORT INFORMATION
  Report Type: 
  Country: None (occurrence: None)
  Receive Date: 20080522
  Receipt Date: 20080522
  Transmission Date: 20081010
  Serious: No
  Sender: FDA-Public Use
  Company Number: None

PATIENT
  Age: 35 Year
  Sex: Male
  Weight: 77.1115 kg

DRUGS (1)
  1. CENTRUM MULTIVITAMIN   WYETH CONSUMER HEALTHCARE [Suspect]
     Indication: VITAMIN SUPPLEMENTATION
     Dosage: 1 PILL DAILY PO
     Route: 048
     Dates: start: 20080501, end: 20080515

REACTIONS (3)
  - ABDOMINAL PAIN UPPER [None]
  - DYSPEPSIA [None]
  - PHARMACEUTICAL PRODUCT COMPLAINT [None]
